FAERS Safety Report 15324552 (Version 2)
Quarter: 2018Q4

REPORT INFORMATION
  Report Type: Spontaneous
  Country: US (occurrence: US)
  Receive Date: 20180828
  Receipt Date: 20181123
  Transmission Date: 20190204
  Serious: Yes (Other)
  Sender: FDA-Public Use
  Company Number: US-BIOGEN-2018BI00623916

PATIENT
  Sex: Female

DRUGS (1)
  1. TYSABRI [Suspect]
     Active Substance: NATALIZUMAB
     Indication: EXPOSURE VIA PARTNER
     Dosage: INFUSED OVER 1 HOUR
     Route: 065

REACTIONS (2)
  - Oligohydramnios [Recovered/Resolved]
  - Paternal exposure before pregnancy [Unknown]
